FAERS Safety Report 4354659-8 (Version None)
Quarter: 2004Q2

REPORT INFORMATION
  Report Type: 
  Country: None (occurrence: None)
  Receive Date: 20040506
  Receipt Date: 20040506
  Transmission Date: 20050107
  Serious: Yes (Other)
  Sender: FDA-Public Use
  Company Number: None

PATIENT
  Age: 55 Year
  Sex: Male
  Weight: 92.9874 kg

DRUGS (3)
  1. ATORVASTATIN - PFIZER 10 MG [Suspect]
     Indication: BLOOD CHOLESTEROL INCREASED
     Dosage: 10 MG DAILY
     Dates: start: 20030501, end: 20040301
  2. FAMOTIDINE [Concomitant]
  3. INHALED FLUTICASONE [Concomitant]

REACTIONS (4)
  - BLOOD CREATINE DECREASED [None]
  - CREATINE PHOSPHOKINASE DECREASED [None]
  - MYALGIA [None]
  - PROTEIN TOTAL DECREASED [None]
